FAERS Safety Report 14670430 (Version 2)
Quarter: 2018Q1

REPORT INFORMATION
  Report Type: Spontaneous
  Country: US (occurrence: US)
  Receive Date: 20180322
  Receipt Date: 20180331
  Transmission Date: 20180509
  Serious: Yes (Hospitalization)
  Sender: FDA-Public Use
  Company Number: US-TEVA-2018-US-873084

PATIENT
  Age: 72 Year
  Sex: Female

DRUGS (3)
  1. ACETAMINOPHEN AND CODEINE [Suspect]
     Active Substance: ACETAMINOPHEN\CODEINE PHOSPHATE
     Dosage: 4000MG OF PARACETAMOL FROM 3 DIFFERENT SOURCES PER DAY FOR THE PAST YEAR
     Route: 065
  2. ACETAMINOPHEN. [Suspect]
     Active Substance: ACETAMINOPHEN
     Dosage: 4000MG OF PARACETAMOL FROM 3 DIFFERENT SOURCES PER DAY FOR THE PAST YEAR
     Route: 065
  3. ACETAMINOPHEN W/HYDROCODONE [Suspect]
     Active Substance: ACETAMINOPHEN\HYDROCODONE
     Dosage: 4000MG OF PARACETAMOL FROM 3 DIFFERENT SOURCES PER DAY FOR THE PAST YEAR
     Route: 065

REACTIONS (2)
  - Pyroglutamate increased [Unknown]
  - Metabolic acidosis [Recovering/Resolving]
